FAERS Safety Report 8810051 (Version 2)
Quarter: 2012Q4

REPORT INFORMATION
  Report Type: 
  Country: BR (occurrence: BR)
  Receive Date: 20120926
  Receipt Date: 20121114
  Transmission Date: 20130627
  Serious: Yes (Death, Hospitalization)
  Sender: FDA-Public Use
  Company Number: BR-GLAXOSMITHKLINE-A0995104A

PATIENT
  Age: 65 Year
  Sex: Female
  Weight: 60 kg

DRUGS (2)
  1. TYKERB [Suspect]
     Indication: PRODUCT USED FOR UNKNOWN INDICATION
     Dosage: 1250MG Per day
     Route: 048
     Dates: start: 201208
  2. XELODA [Suspect]
     Indication: PRODUCT USED FOR UNKNOWN INDICATION
     Dosage: 2000MGM2 Per day
     Route: 065
     Dates: start: 201208

REACTIONS (8)
  - Sepsis [Fatal]
  - Leukopenia [Fatal]
  - Diarrhoea [Fatal]
  - Pyrexia [Fatal]
  - Ileus paralytic [Fatal]
  - Vomiting [Recovered/Resolved]
  - Aspiration bronchial [Fatal]
  - Death [Fatal]
